FAERS Safety Report 5663639-1 (Version None)
Quarter: 2008Q1

REPORT INFORMATION
  Report Type: 
  Country: None (occurrence: None)
  Receive Date: 20080310
  Receipt Date: 20080227
  Transmission Date: 20080703
  Serious: Yes (Death, Hospitalization)
  Sender: FDA-Public Use
  Company Number: AZAUK200700405

PATIENT
  Age: 72 Year
  Sex: Female

DRUGS (4)
  1. VIDAZA [Suspect]
     Indication: MYELODYSPLASTIC SYNDROME
     Dosage: (130 MG, DAILY X 5 DAYS), SUBCUTANEOUS
     Route: 058
     Dates: start: 20070716, end: 20070720
  2. VALPROATE SODIUM [Suspect]
     Indication: MYELODYSPLASTIC SYNDROME
     Dosage: (DAILY), ORAL
     Route: 048
     Dates: start: 20070423, end: 20070727
  3. THEOPHYLLINE [Suspect]
     Indication: MYELODYSPLASTIC SYNDROME
     Dosage: (175 MG, DAILY), ORAL
     Route: 048
     Dates: start: 20070423, end: 20070520
  4. ATRA [Suspect]
     Indication: MYELODYSPLASTIC SYNDROME
     Dosage: (80 MG, DAILY)
     Dates: start: 20070423, end: 20070520

REACTIONS (4)
  - CONFUSIONAL STATE [None]
  - DRUG TOXICITY [None]
  - LOWER RESPIRATORY TRACT INFECTION [None]
  - NEUTROPENIC SEPSIS [None]
